FAERS Safety Report 8915408 (Version 2)
Quarter: 2012Q4

REPORT INFORMATION
  Report Type: Report from Study
  Country: US (occurrence: US)
  Receive Date: 20121116
  Receipt Date: 20121217
  Transmission Date: 20130627
  Serious: Yes (Other)
  Sender: FDA-Public Use
  Company Number: US-BAXTER-2012BAX023229

PATIENT
  Sex: Female
  Weight: 109.09 kg

DRUGS (4)
  1. VERAPAMIL [Concomitant]
     Indication: BLOOD PRESSURE
     Route: 048
  2. GLIPIZIDE [Concomitant]
     Indication: DRUG USE FOR UNKNOWN INDICATION
     Route: 048
  3. GAMMAGARD LIQUID [Suspect]
     Indication: COMMON VARIABLE IMMUNODEFICIENCY
     Route: 058
     Dates: start: 20121029
  4. GAMMAGARD LIQUID [Suspect]
     Route: 058
     Dates: start: 20121105

REACTIONS (14)
  - Laryngitis [Not Recovered/Not Resolved]
  - Chest discomfort [Recovering/Resolving]
  - Blood pressure increased [Recovered/Resolved]
  - Nausea [Recovered/Resolved]
  - Dyspnoea [Recovering/Resolving]
  - Flushing [Recovering/Resolving]
  - Sinus headache [Not Recovered/Not Resolved]
  - Increased viscosity of nasal secretion [Recovered/Resolved]
  - Feeling of body temperature change [Recovered/Resolved]
  - Rash [Not Recovered/Not Resolved]
  - Pruritus [Not Recovered/Not Resolved]
  - Headache [Not Recovered/Not Resolved]
  - Infusion site rash [Not Recovered/Not Resolved]
  - Dysphonia [Not Recovered/Not Resolved]
